FAERS Safety Report 5887338-6 (Version None)
Quarter: 2008Q3

REPORT INFORMATION
  Report Type: 
  Country: None (occurrence: None)
  Receive Date: 20080918
  Receipt Date: 20080605
  Transmission Date: 20090109
  Serious: Yes (Hospitalization)
  Sender: FDA-Public Use
  Company Number: US-JNJFOC-20080903389

PATIENT
  Age: 48 Year
  Sex: Female

DRUGS (3)
  1. DOXIL [Suspect]
     Indication: MULTIPLE MYELOMA
     Route: 065
  2. VELCADE [Suspect]
     Dosage: CYCLE 2, DAY 8
     Route: 040
  3. VELCADE [Suspect]
     Indication: MULTIPLE MYELOMA
     Route: 040

REACTIONS (2)
  - BLOOD CREATININE INCREASED [None]
  - PLATELET COUNT DECREASED [None]
